FAERS Safety Report 19788225 (Version 5)
Quarter: 2021Q4

REPORT INFORMATION
  Report Type: Report from Study
  Country: FR (occurrence: FR)
  Receive Date: 20210903
  Receipt Date: 20211108
  Transmission Date: 20220303
  Serious: Yes (Other)
  Sender: FDA-Public Use
  Company Number: FR-PFM-2021-08557

PATIENT
  Age: 61 Year
  Sex: Male
  Weight: 138 kg

DRUGS (5)
  1. BINIMETINIB [Suspect]
     Active Substance: BINIMETINIB
     Indication: Malignant melanoma
     Dosage: 45 MG, BID (2/DAY)
     Route: 048
     Dates: start: 20210729, end: 20210825
  2. ENCORAFENIB [Suspect]
     Active Substance: ENCORAFENIB
     Indication: Malignant melanoma
     Dosage: 450 MG, QD (1/DAY)
     Route: 048
     Dates: start: 20210729, end: 20210825
  3. OPDIVO [Concomitant]
     Active Substance: NIVOLUMAB
     Indication: Malignant melanoma
     Dosage: 3 MG/KG, Q3W
     Route: 042
     Dates: start: 20210209
  4. OPDIVO [Concomitant]
     Active Substance: NIVOLUMAB
     Dosage: 480 MG, Q4W
     Route: 042
     Dates: end: 20210722
  5. YERVOY [Concomitant]
     Active Substance: IPILIMUMAB
     Indication: Malignant melanoma
     Dosage: 137 MG, Q3W
     Route: 042
     Dates: start: 20210209, end: 20210413

REACTIONS (1)
  - Hepatic cytolysis [Recovered/Resolved]

NARRATIVE: CASE EVENT DATE: 20210825
